FAERS Safety Report 7155866-1 (Version None)
Quarter: 2010Q4

REPORT INFORMATION
  Report Type: 
  Country: None (occurrence: None)
  Receive Date: 20101214
  Receipt Date: 20101130
  Transmission Date: 20110411
  Serious: Yes (Death)
  Sender: FDA-Public Use
  Company Number: DE-CELGENEUS-062-50794-10121246

PATIENT
  Age: 70 Year
  Sex: Female

DRUGS (5)
  1. VIDAZA [Suspect]
     Route: 051
  2. VIDAZA [Suspect]
     Route: 051
  3. CYTARABINE [Suspect]
     Route: 051
  4. CYTARABINE [Suspect]
     Route: 051
  5. DAUNORUBICIN HCL [Suspect]
     Route: 051

REACTIONS (1)
  - SEPTIC SHOCK [None]
